FAERS Safety Report 18194857 (Version 2)
Quarter: 2020Q3

REPORT INFORMATION
  Report Type: Spontaneous
  Country: GB (occurrence: GB)
  Receive Date: 20200826
  Receipt Date: 20200928
  Transmission Date: 20201103
  Serious: Yes (Other)
  Sender: FDA-Public Use
  Company Number: GB-CELLTRION INC.-2020GB025840

PATIENT

DRUGS (2)
  1. REMSIMA [Suspect]
     Active Substance: INFLIXIMAB
     Indication: RHEUMATOID ARTHRITIS
     Dosage: 120 MILLIGRAM, EVERY OTHER WEEK
     Route: 058
     Dates: start: 20200807
  2. REMSIMA [Suspect]
     Active Substance: INFLIXIMAB
     Dosage: 120 MILLIGRAM, EVERY OTHER WEEK
     Route: 058
     Dates: start: 20200821

REACTIONS (1)
  - Rheumatoid arthritis [Unknown]
